FAERS Safety Report 6312322-8 (Version None)
Quarter: 2009Q3

REPORT INFORMATION
  Report Type: 
  Country: None (occurrence: None)
  Receive Date: 20090817
  Receipt Date: 20090804
  Transmission Date: 20100115
  Serious: No
  Sender: FDA-Public Use
  Company Number: ZA-ROCHE-645334

PATIENT
  Sex: Male
  Weight: 83 kg

DRUGS (5)
  1. ROACCUTANE [Suspect]
     Indication: ACNE
     Dosage: FORM UNSPECIFIED. FREQUENCY REPORTED AS DAILY.
     Route: 048
     Dates: start: 20090601, end: 20090701
  2. FORTZAAR [Concomitant]
  3. AMLOC [Concomitant]
  4. LIPITOR [Concomitant]
  5. SYMBICORD [Concomitant]

REACTIONS (2)
  - BENIGN INTRACRANIAL HYPERTENSION [None]
  - HEADACHE [None]
